FAERS Safety Report 6440224-5 (Version None)
Quarter: 2009Q4

REPORT INFORMATION
  Report Type: 
  Country: None (occurrence: None)
  Receive Date: 20091113
  Receipt Date: 20091103
  Transmission Date: 20100525
  Serious: Yes (Other)
  Sender: FDA-Public Use
  Company Number: PL-PFIZER INC-2009292397

PATIENT
  Age: 54 Year
  Sex: Female
  Weight: 75 kg

DRUGS (3)
  1. LYRICA [Suspect]
     Indication: MONONEUROPATHY
     Dosage: 300 TOTAL DAILY DOSE
     Route: 048
     Dates: end: 20090811
  2. BISOCARD [Concomitant]
     Dosage: 5 UNK, UNK
  3. ACETYLSALICYLIC ACID [Concomitant]
     Dosage: 75 MG, UNK

REACTIONS (2)
  - ALBINISM [None]
  - ALOPECIA [None]
